FAERS Safety Report 21291108 (Version 1)
Quarter: 2022Q3

REPORT INFORMATION
  Report Type: Spontaneous
  Country: US (occurrence: US)
  Receive Date: 20220903
  Receipt Date: 20220903
  Transmission Date: 20221027
  Serious: Yes (Hospitalization)
  Sender: FDA-Public Use
  Company Number: US-SA-SAC20220831000534

PATIENT
  Sex: Female

DRUGS (2)
  1. DUPIXENT [Suspect]
     Active Substance: DUPILUMAB
     Route: 064
  2. PROTOPIC [Suspect]
     Active Substance: TACROLIMUS
     Route: 064

REACTIONS (6)
  - Premature baby [Unknown]
  - Foetal exposure during pregnancy [Unknown]
  - Back disorder [Unknown]
  - Muscle disorder [Unknown]
  - Gastric disorder [Unknown]
  - Musculoskeletal disorder [Unknown]
